FAERS Safety Report 22102255 (Version 1)
Quarter: 2023Q1

REPORT INFORMATION
  Report Type: Spontaneous
  Country: FR (occurrence: FR)
  Receive Date: 20230316
  Receipt Date: 20230316
  Transmission Date: 20230418
  Serious: Yes (Hospitalization)
  Sender: FDA-Public Use
  Company Number: None

PATIENT
  Age: 5 Year
  Sex: Male
  Weight: 21 kg

DRUGS (4)
  1. PREZISTA [Suspect]
     Active Substance: DARUNAVIR ETHANOLATE
     Indication: Congenital HIV infection
     Route: 048
     Dates: start: 202204, end: 20230113
  2. NORVIR [Suspect]
     Active Substance: RITONAVIR
     Indication: Congenital HIV infection
     Dosage: 100MG/JR
     Route: 048
     Dates: start: 202204
  3. EPIVIR [Suspect]
     Active Substance: LAMIVUDINE
     Indication: Congenital HIV infection
     Dosage: 9.5ML 2/JR
     Route: 048
     Dates: start: 202204
  4. ZIAGEN [Suspect]
     Active Substance: ABACAVIR SULFATE
     Indication: Congenital HIV infection
     Dosage: 8ML 2/JR
     Route: 048
     Dates: start: 202204

REACTIONS (1)
  - Eosinophilia [Recovering/Resolving]

NARRATIVE: CASE EVENT DATE: 20220914
